FAERS Safety Report 9668635 (Version 2)
Quarter: 2013Q4

REPORT INFORMATION
  Report Type: Report from Study
  Country: US (occurrence: US)
  Receive Date: 20131105
  Receipt Date: 20131220
  Transmission Date: 20140711
  Serious: Yes (Death, Hospitalization)
  Sender: FDA-Public Use
  Company Number: US-ROCHE-1295981

PATIENT
  Age: 33 Year
  Sex: Male
  Weight: 91.9 kg

DRUGS (13)
  1. BEVACIZUMAB [Suspect]
     Indication: GLIOBLASTOMA
     Route: 065
     Dates: start: 20131009
  2. BEVACIZUMAB [Suspect]
     Indication: GLIOBLASTOMA
     Route: 065
     Dates: start: 20131023
  3. VORINOSTAT [Suspect]
     Indication: GLIOBLASTOMA
     Route: 048
     Dates: start: 20131009, end: 20131015
  4. VORINOSTAT [Suspect]
     Route: 048
     Dates: start: 20131023, end: 20131024
  5. OXYCODONE [Concomitant]
     Route: 065
  6. MORPHINE [Concomitant]
     Route: 065
  7. DECADRON [Concomitant]
     Route: 065
  8. KEPPRA [Concomitant]
     Route: 065
  9. PROMETHAZINE [Concomitant]
     Route: 065
  10. TMP-SMZ [Concomitant]
     Dosage: 800-160 MG
     Route: 065
  11. FLUCONAZOLE [Concomitant]
     Route: 065
  12. NYSTATIN [Concomitant]
     Dosage: 100000 UNITS /ML
     Route: 065
  13. PROTONIX (UNITED STATES) [Concomitant]
     Route: 065

REACTIONS (4)
  - Brain herniation [Fatal]
  - Headache [Unknown]
  - Nausea [Unknown]
  - Brain oedema [Unknown]
